FAERS Safety Report 10062677 (Version 3)
Quarter: 2020Q1

REPORT INFORMATION
  Report Type: Spontaneous
  Country: US (occurrence: US)
  Receive Date: 20140407
  Receipt Date: 20200309
  Transmission Date: 20200409
  Serious: Yes (Death, Hospitalization, Other)
  Sender: FDA-Public Use
  Company Number: US-009507513-1404USA003572

PATIENT
  Sex: Female
  Weight: 61.22 kg

DRUGS (10)
  1. ALPRAZOLAM. [Concomitant]
     Active Substance: ALPRAZOLAM
     Indication: ANXIETY
     Dosage: UNK
     Dates: start: 20070111, end: 201210
  2. ATENOLOL. [Concomitant]
     Active Substance: ATENOLOL
     Indication: BLOOD PRESSURE ABNORMAL
     Dosage: UNK
     Dates: start: 20070111, end: 201210
  3. HYDROCHLOROTHIAZIDE AND LISINOPRIL [Concomitant]
     Active Substance: HYDROCHLOROTHIAZIDE\LISINOPRIL
     Indication: BLOOD PRESSURE ABNORMAL
     Dosage: 20-12
     Dates: start: 20071011, end: 201210
  4. SYNTHROID [Concomitant]
     Active Substance: LEVOTHYROXINE SODIUM
     Indication: HYPOTHYROIDISM
     Dosage: UNK
     Dates: start: 20070122, end: 201210
  5. JANUVIA [Suspect]
     Active Substance: SITAGLIPTIN PHOSPHATE
     Dosage: 100 MG, QD
     Route: 048
     Dates: start: 20100716, end: 20121008
  6. DIOVAN HCT [Concomitant]
     Active Substance: HYDROCHLOROTHIAZIDE\VALSARTAN
     Indication: HYPERTENSION
     Dosage: 160/12.5
     Dates: start: 20100530, end: 201210
  7. ALPRAZOLAM. [Concomitant]
     Active Substance: ALPRAZOLAM
     Indication: PANIC DISORDER
  8. PREVACID [Concomitant]
     Active Substance: LANSOPRAZOLE
     Indication: GASTROOESOPHAGEAL REFLUX DISEASE
     Dosage: UNK
     Dates: start: 20070111, end: 201210
  9. NORVASC [Concomitant]
     Active Substance: AMLODIPINE BESYLATE
     Indication: BLOOD PRESSURE ABNORMAL
     Dosage: UNK
     Dates: start: 20070111, end: 201210
  10. JANUVIA [Suspect]
     Active Substance: SITAGLIPTIN PHOSPHATE
     Indication: TYPE 2 DIABETES MELLITUS
     Dosage: 50 MG, QD
     Route: 048
     Dates: start: 20100528, end: 20100715

REACTIONS (20)
  - Type 1 diabetes mellitus [Unknown]
  - Hyperammonaemia [Unknown]
  - Vitamin D deficiency [Unknown]
  - Candida infection [Unknown]
  - Metastases to liver [Unknown]
  - Ascites [Unknown]
  - Hysterectomy [Unknown]
  - Constipation [Unknown]
  - Pancreatic carcinoma metastatic [Fatal]
  - Transient ischaemic attack [Unknown]
  - Hepatic failure [Unknown]
  - Anxiety [Unknown]
  - Gait disturbance [Unknown]
  - Hypothyroidism [Unknown]
  - Anaemia [Unknown]
  - Osteoporosis [Unknown]
  - Diverticulum intestinal [Unknown]
  - Biopsy kidney [Unknown]
  - Cholecystitis [Unknown]
  - Pancreatitis [Unknown]

NARRATIVE: CASE EVENT DATE: 201104
